FAERS Safety Report 4675510-2 (Version None)
Quarter: 2005Q2

REPORT INFORMATION
  Report Type: 
  Country: None (occurrence: None)
  Receive Date: 20050527
  Receipt Date: 20050329
  Transmission Date: 20051028
  Serious: No
  Sender: FDA-Public Use
  Company Number: US-BRISTOL-MYERS SQUIBB COMPANY-12913828

PATIENT
  Age: 49 Year
  Sex: Male
  Weight: 141 kg

DRUGS (9)
  1. ABILIFY [Suspect]
     Dates: start: 20050323
  2. TRAZODONE HCL [Concomitant]
  3. VERAPAMIL [Concomitant]
  4. POTASSIUM CHLORIDE [Concomitant]
  5. LASIX [Concomitant]
  6. COGENTIN [Concomitant]
  7. SEROQUEL [Concomitant]
  8. KRISTALOSE [Concomitant]
  9. OXYGEN [Concomitant]
     Route: 045

REACTIONS (2)
  - ANOREXIA [None]
  - INSOMNIA [None]
